FAERS Safety Report 8430586-1 (Version None)
Quarter: 2012Q2

REPORT INFORMATION
  Report Type: 
  Country: None (occurrence: None)
  Receive Date: 20120612
  Receipt Date: 20120606
  Transmission Date: 20120825
  Serious: Yes (Other)
  Sender: FDA-Public Use
  Company Number: CH-GLAXOSMITHKLINE-B0807435A

PATIENT
  Sex: Female

DRUGS (2)
  1. MARCUMAR [Suspect]
     Indication: PRODUCT USED FOR UNKNOWN INDICATION
     Dosage: 3MG AS REQUIRED
     Route: 048
     Dates: start: 20110601, end: 20111018
  2. ARIXTRA [Suspect]
     Indication: PRODUCT USED FOR UNKNOWN INDICATION
     Route: 058
     Dates: start: 20111019, end: 20111111

REACTIONS (3)
  - NAUSEA [None]
  - ABDOMINAL PAIN UPPER [None]
  - HEPATOCELLULAR INJURY [None]
